FAERS Safety Report 4726089-8 (Version None)
Quarter: 2005Q3

REPORT INFORMATION
  Report Type: 
  Country: None (occurrence: None)
  Receive Date: 20050727
  Receipt Date: 20050720
  Transmission Date: 20060218
  Serious: Yes (Other)
  Sender: FDA-Public Use
  Company Number: JP-BRISTOL-MYERS SQUIBB COMPANY-13047030

PATIENT
  Age: 5 Year
  Sex: Male

DRUGS (2)
  1. VEPESID [Suspect]
     Indication: RETINOBLASTOMA BILATERAL
     Route: 042
  2. PARAPLATIN [Suspect]
     Indication: RETINOBLASTOMA BILATERAL
     Route: 042

REACTIONS (1)
  - AESTHESIONEUROBLASTOMA [None]
